FAERS Safety Report 16592268 (Version 1)
Quarter: 2019Q3

REPORT INFORMATION
  Report Type: Report from Study
  Country: None (occurrence: US)
  Receive Date: 20190718
  Receipt Date: 20190718
  Transmission Date: 20191004
  Serious: Yes (Hospitalization, Other)
  Sender: FDA-Public Use
  Company Number: US-ABBVIE-19K-163-2850793-00

PATIENT
  Age: 45 Year
  Sex: Female

DRUGS (1)
  1. HUMIRA [Suspect]
     Active Substance: ADALIMUMAB
     Indication: CROHN^S DISEASE
     Route: 058
     Dates: start: 2016

REACTIONS (8)
  - Abdominal pain upper [Not Recovered/Not Resolved]
  - Abscess [Unknown]
  - Pain [Not Recovered/Not Resolved]
  - Thrombosis [Unknown]
  - Injection site pain [Recovered/Resolved]
  - Crohn^s disease [Recovered/Resolved]
  - Thrombosis [Not Recovered/Not Resolved]
  - Stent placement [Unknown]

NARRATIVE: CASE EVENT DATE: 2017
